FAERS Safety Report 12933169 (Version 3)
Quarter: 2017Q1

REPORT INFORMATION
  Report Type: Report from Study
  Country: FR (occurrence: FR)
  Receive Date: 20161111
  Receipt Date: 20170207
  Transmission Date: 20170428
  Serious: Yes (Hospitalization, Other)
  Sender: FDA-Public Use
  Company Number: FR-ACTELION-A-CH2014-106905

PATIENT
  Age: 31 Year
  Sex: Female
  Weight: 85 kg

DRUGS (11)
  1. TRIFLUCAN [Concomitant]
     Active Substance: FLUCONAZOLE
     Indication: CANDIDA INFECTION
     Dosage: 100 MG, QD
     Route: 048
     Dates: start: 20141110
  2. PRIMPERAN [Concomitant]
     Active Substance: METOCLOPRAMIDE HYDROCHLORIDE
     Indication: GASTROOESOPHAGEAL REFLUX DISEASE
     Dosage: UNK, QD
     Route: 048
     Dates: start: 201312
  3. AMLOR [Concomitant]
     Active Substance: AMLODIPINE BESYLATE
     Indication: HYPERTENSION
     Dosage: UNK
     Route: 048
     Dates: start: 20131210, end: 20140222
  4. MOTILIUM [Concomitant]
     Active Substance: DOMPERIDONE
     Indication: GASTROOESOPHAGEAL REFLUX DISEASE
  5. TRACLEER [Suspect]
     Active Substance: BOSENTAN
     Indication: SCLERODERMA RENAL CRISIS
     Dosage: 125 MG, BID
     Route: 048
     Dates: start: 20131211, end: 20160416
  6. KARDEGIC [Concomitant]
     Active Substance: ASPIRIN LYSINE
     Indication: SCLERODERMA RENAL CRISIS
     Dosage: 75 UNK, UNK
  7. INEXIUM [Concomitant]
     Active Substance: ESOMEPRAZOLE
     Indication: GASTROOESOPHAGEAL REFLUX DISEASE
     Dosage: 20 UNK, UNK
     Route: 048
     Dates: start: 20131211
  8. DOLIPRANE [Concomitant]
     Active Substance: ACETAMINOPHEN
     Dosage: UNK
     Route: 048
     Dates: start: 201312
  9. CORTANCYL [Suspect]
     Active Substance: PREDNISONE
     Indication: MYOSITIS
     Dosage: 60 MG, QD
     Route: 048
     Dates: start: 20141110
  10. TRIATEC [Concomitant]
     Active Substance: RAMIPRIL
     Dosage: 10 UNK, UNK
     Route: 048
     Dates: start: 20131210
  11. EUPRESSYL [Concomitant]
     Active Substance: URAPIDIL
     Indication: HYPERTENSION
     Dosage: UNK

REACTIONS (14)
  - Muscle disorder [Unknown]
  - Concomitant disease aggravated [Unknown]
  - Enterobacter infection [Recovered/Resolved]
  - Scleroderma [Unknown]
  - Dyspnoea [Recovered/Resolved]
  - Escherichia infection [Recovered/Resolved]
  - Skin ulcer [Unknown]
  - Disease progression [Unknown]
  - Catheter site infection [Recovered/Resolved]
  - Influenza [Recovered/Resolved]
  - Pseudomonal sepsis [Recovered/Resolved]
  - Cardiac failure [Recovered/Resolved]
  - Biopsy [Recovered/Resolved]
  - Myocarditis [Recovered/Resolved]

NARRATIVE: CASE EVENT DATE: 20140215
